FAERS Safety Report 8560239-0 (Version None)
Quarter: 2012Q3

REPORT INFORMATION
  Report Type: 
  Country: None (occurrence: None)
  Receive Date: 20120802
  Receipt Date: 20120725
  Transmission Date: 20120928
  Serious: Yes (Hospitalization)
  Sender: FDA-Public Use
  Company Number: US-BAYER-2012-076165

PATIENT
  Age: 36 Year
  Sex: Female
  Weight: 72.3 kg

DRUGS (5)
  1. PROMETHAZINE [Concomitant]
     Dosage: 25 MG, UNK
     Route: 048
  2. YAZ [Suspect]
     Dosage: UNK
     Dates: start: 20081120, end: 20090330
  3. COMBIVENT [Concomitant]
  4. FLEXERIL [Concomitant]
     Indication: MUSCLE SPASMS
     Dosage: 5 MG, UNK
  5. EXCEDRIN [ACETYLSALICYLIC ACID,CAFFEINE,PARACETAMOL,SALICYLAMIDE] [Concomitant]
     Indication: MUSCLE SPASMS

REACTIONS (4)
  - JOINT SWELLING [None]
  - DEEP VEIN THROMBOSIS [None]
  - THROMBOPHLEBITIS SUPERFICIAL [None]
  - ARTHRALGIA [None]
